FAERS Safety Report 12163836 (Version 1)
Quarter: 2016Q1

REPORT INFORMATION
  Report Type: Spontaneous
  Country: US (occurrence: US)
  Receive Date: 20160309
  Receipt Date: 20160309
  Transmission Date: 20160526
  Serious: No
  Sender: FDA-Public Use
  Company Number: US-ROCHE-1614686

PATIENT
  Sex: Female

DRUGS (5)
  1. XOLAIR [Suspect]
     Active Substance: OMALIZUMAB
     Indication: SOLAR URTICARIA
     Route: 065
     Dates: start: 20150415
  2. VITAMIN C [Concomitant]
     Active Substance: ASCORBIC ACID
  3. CLONIDINE. [Concomitant]
     Active Substance: CLONIDINE
  4. XOLAIR [Suspect]
     Active Substance: OMALIZUMAB
     Route: 065
  5. LOVASTATIN. [Concomitant]
     Active Substance: LOVASTATIN

REACTIONS (2)
  - Drug ineffective [Unknown]
  - Sunburn [Unknown]
